FAERS Safety Report 5029374-8 (Version None)
Quarter: 2006Q2

REPORT INFORMATION
  Report Type: 
  Country: None (occurrence: None)
  Receive Date: 20060614
  Receipt Date: 20060526
  Transmission Date: 20061013
  Serious: Yes (Hospitalization)
  Sender: FDA-Public Use
  Company Number: US200606001749

PATIENT
  Age: 87 Year
  Sex: Female

DRUGS (2)
  1. FORTEO [Suspect]
     Dates: start: 20060401, end: 20060501
  2. FORTEO [Concomitant]

REACTIONS (3)
  - FALL [None]
  - HAEMORRHAGE [None]
  - HEAD INJURY [None]
